FAERS Safety Report 14418440 (Version 1)
Quarter: 2018Q1

REPORT INFORMATION
  Report Type: Spontaneous
  Country: US (occurrence: US)
  Receive Date: 20180122
  Receipt Date: 20180122
  Transmission Date: 20180509
  Serious: No
  Sender: FDA-Public Use
  Company Number: US-INTERCEPT-PMOCA2017001376

PATIENT

DRUGS (14)
  1. SPIRIVA [Concomitant]
     Active Substance: TIOTROPIUM BROMIDE MONOHYDRATE
  2. OMEGA 3 [Concomitant]
     Active Substance: OMEGA-3 FATTY ACIDS
  3. CLONAZEPAM. [Concomitant]
     Active Substance: CLONAZEPAM
  4. OCALIVA [Suspect]
     Active Substance: OBETICHOLIC ACID
     Indication: PSORIASIS
     Dosage: 5 MG, QD
     Route: 048
     Dates: start: 20170429
  5. BUMETANIDE. [Concomitant]
     Active Substance: BUMETANIDE
  6. ALPRAZOLAM. [Concomitant]
     Active Substance: ALPRAZOLAM
  7. MONTELUKAST [Concomitant]
     Active Substance: MONTELUKAST SODIUM
  8. ARIPIPRAZOLE. [Concomitant]
     Active Substance: ARIPIPRAZOLE
  9. CENTRUM [Concomitant]
     Active Substance: VITAMINS
  10. URSODIOL. [Concomitant]
     Active Substance: URSODIOL
  11. LOSARTAN. [Concomitant]
     Active Substance: LOSARTAN
  12. AMPHETAMINE [Concomitant]
     Active Substance: AMPHETAMINE
  13. METFORMIN [Concomitant]
     Active Substance: METFORMIN HYDROCHLORIDE
  14. DULOXETINE. [Concomitant]
     Active Substance: DULOXETINE

REACTIONS (1)
  - Pruritus [Unknown]

NARRATIVE: CASE EVENT DATE: 201710
